FAERS Safety Report 18535949 (Version 2)
Quarter: 2020Q4

REPORT INFORMATION
  Report Type: Report from Study
  Country: None (occurrence: NZ)
  Receive Date: 20201123
  Receipt Date: 20201125
  Transmission Date: 20210114
  Serious: Yes (Death, Hospitalization, Disabling, Other)
  Sender: FDA-Public Use
  Company Number: NZ-ABBVIE-20K-118-3657947-00

PATIENT
  Sex: Female

DRUGS (5)
  1. HUMIRA [Suspect]
     Active Substance: ADALIMUMAB
     Indication: CROHN^S DISEASE
     Route: 058
     Dates: start: 20101215
  2. HUMIRA [Suspect]
     Active Substance: ADALIMUMAB
     Route: 058
     Dates: start: 2011, end: 2014
  3. PREDNISONE. [Concomitant]
     Active Substance: PREDNISONE
     Indication: PRODUCT USED FOR UNKNOWN INDICATION
  4. HUMIRA [Suspect]
     Active Substance: ADALIMUMAB
     Route: 058
  5. HUMIRA [Suspect]
     Active Substance: ADALIMUMAB
     Route: 058

REACTIONS (21)
  - Cellulitis [Fatal]
  - Gamma-glutamyltransferase decreased [Unknown]
  - Emotional distress [Unknown]
  - Hepatic steatosis [Unknown]
  - Gamma-glutamyltransferase increased [Unknown]
  - Alanine aminotransferase decreased [Unknown]
  - Musculoskeletal disorder [Unknown]
  - Weight increased [Recovered/Resolved]
  - Tremor [Recovered/Resolved]
  - Aspartate aminotransferase increased [Unknown]
  - Chest pain [Unknown]
  - Anxiety [Unknown]
  - Liver function test increased [Unknown]
  - Neutrophil count abnormal [Unknown]
  - Diabetes mellitus [Recovered/Resolved]
  - Herpes zoster [Recovered/Resolved]
  - Sepsis [Fatal]
  - Aspartate aminotransferase decreased [Unknown]
  - Hepatic cirrhosis [Fatal]
  - Knee operation [Unknown]
  - Alanine aminotransferase increased [Unknown]

NARRATIVE: CASE EVENT DATE: 2011
